FAERS Safety Report 20234037 (Version 2)
Quarter: 2021Q4

REPORT INFORMATION
  Report Type: Spontaneous
  Country: CA (occurrence: CA)
  Receive Date: 20211227
  Receipt Date: 20211228
  Transmission Date: 20220303
  Serious: Yes (Hospitalization, Other)
  Sender: FDA-Public Use
  Company Number: CA-TEVA-2021-CA-1993222

PATIENT
  Age: 77 Year
  Sex: Female

DRUGS (123)
  1. ACEBUTOLOL HYDROCHLORIDE [Suspect]
     Active Substance: ACEBUTOLOL HYDROCHLORIDE
     Indication: Hypertension
     Dosage: 400 MILLIGRAM DAILY;
     Route: 065
  2. ACEBUTOLOL HYDROCHLORIDE [Suspect]
     Active Substance: ACEBUTOLOL HYDROCHLORIDE
     Indication: Coronary artery disease
     Dosage: 800 MILLIGRAM DAILY;
     Route: 065
  3. ACEBUTOLOL HYDROCHLORIDE [Suspect]
     Active Substance: ACEBUTOLOL HYDROCHLORIDE
     Indication: Constipation
     Route: 065
  4. ACEBUTOLOL HYDROCHLORIDE [Suspect]
     Active Substance: ACEBUTOLOL HYDROCHLORIDE
     Indication: Angina pectoris
     Dosage: 57.1429 MILLIGRAM DAILY;
     Route: 065
  5. ACEBUTOLOL HYDROCHLORIDE [Suspect]
     Active Substance: ACEBUTOLOL HYDROCHLORIDE
     Dosage: 400 MILLIGRAM DAILY;
     Route: 065
  6. ACETAMINOPHEN [Suspect]
     Active Substance: ACETAMINOPHEN
     Indication: Product used for unknown indication
     Route: 065
  7. AMITRIPTYLINE HYDROCHLORIDE [Suspect]
     Active Substance: AMITRIPTYLINE HYDROCHLORIDE
     Indication: Product used for unknown indication
     Route: 065
  8. AMITRIPTYLINE HYDROCHLORIDE [Suspect]
     Active Substance: AMITRIPTYLINE HYDROCHLORIDE
     Indication: Hypertension
     Route: 065
  9. AMITRIPTYLINE HYDROCHLORIDE [Suspect]
     Active Substance: AMITRIPTYLINE HYDROCHLORIDE
     Indication: Fibromyalgia
     Route: 065
  10. AMITRIPTYLINE HYDROCHLORIDE [Suspect]
     Active Substance: AMITRIPTYLINE HYDROCHLORIDE
     Indication: Dementia
     Route: 065
  11. AMITRIPTYLINE HYDROCHLORIDE [Suspect]
     Active Substance: AMITRIPTYLINE HYDROCHLORIDE
     Indication: Coronary artery disease
     Route: 065
  12. AMITRIPTYLINE HYDROCHLORIDE [Suspect]
     Active Substance: AMITRIPTYLINE HYDROCHLORIDE
     Indication: Arthritis
     Route: 065
  13. AMITRIPTYLINE HYDROCHLORIDE [Suspect]
     Active Substance: AMITRIPTYLINE HYDROCHLORIDE
     Indication: Angina pectoris
     Route: 065
  14. AMLODIPINE BESYLATE [Suspect]
     Active Substance: AMLODIPINE BESYLATE
     Indication: Hypertension
     Dosage: 5 MILLIGRAM DAILY;
     Route: 065
  15. AMLODIPINE BESYLATE [Suspect]
     Active Substance: AMLODIPINE BESYLATE
     Indication: Coronary artery disease
  16. AMLODIPINE BESYLATE [Suspect]
     Active Substance: AMLODIPINE BESYLATE
     Indication: Constipation
  17. AMLODIPINE BESYLATE [Suspect]
     Active Substance: AMLODIPINE BESYLATE
     Indication: Angina pectoris
  18. CALCIUM CARBONATE [Suspect]
     Active Substance: CALCIUM CARBONATE
     Indication: Product used for unknown indication
     Route: 065
  19. CARBAMAZEPINE [Suspect]
     Active Substance: CARBAMAZEPINE
     Indication: Seizure prophylaxis
     Dosage: 200 MILLIGRAM DAILY;
     Route: 065
  20. CARBAMAZEPINE [Suspect]
     Active Substance: CARBAMAZEPINE
     Indication: Seizure
     Dosage: 400 MILLIGRAM DAILY;
     Route: 065
  21. CYCLOBENZAPRINE HYDROCHLORIDE [Suspect]
     Active Substance: CYCLOBENZAPRINE HYDROCHLORIDE
     Indication: Seizure prophylaxis
     Dosage: 10 MILLIGRAM DAILY;
     Route: 065
  22. CYCLOBENZAPRINE HYDROCHLORIDE [Suspect]
     Active Substance: CYCLOBENZAPRINE HYDROCHLORIDE
     Indication: Product used for unknown indication
     Dosage: 45 MILLIGRAM DAILY;
     Route: 065
  23. CYCLOBENZAPRINE HYDROCHLORIDE [Suspect]
     Active Substance: CYCLOBENZAPRINE HYDROCHLORIDE
     Indication: Pain
     Dosage: 200 MILLIGRAM DAILY;
     Route: 065
  24. DILTIAZEM HYDROCHLORIDE [Suspect]
     Active Substance: DILTIAZEM HYDROCHLORIDE
     Indication: Hypertension
     Dosage: 360 MILLIGRAM DAILY;
     Route: 065
  25. DILTIAZEM HYDROCHLORIDE [Suspect]
     Active Substance: DILTIAZEM HYDROCHLORIDE
     Indication: Coronary artery disease
     Route: 065
  26. DILTIAZEM HYDROCHLORIDE [Suspect]
     Active Substance: DILTIAZEM HYDROCHLORIDE
     Indication: Chest pain
     Route: 065
  27. DILTIAZEM HYDROCHLORIDE [Suspect]
     Active Substance: DILTIAZEM HYDROCHLORIDE
     Indication: Angina pectoris
     Route: 065
  28. DILTIAZEM HYDROCHLORIDE [Suspect]
     Active Substance: DILTIAZEM HYDROCHLORIDE
     Indication: Product used for unknown indication
     Dosage: 360 MILLIGRAM DAILY;
     Route: 065
  29. DILTIAZEM HYDROCHLORIDE [Suspect]
     Active Substance: DILTIAZEM HYDROCHLORIDE
     Dosage: 360 MILLIGRAM DAILY;
     Route: 065
  30. DILTIAZEM HYDROCHLORIDE [Suspect]
     Active Substance: DILTIAZEM HYDROCHLORIDE
     Dosage: 360 MILLIGRAM DAILY;
     Route: 065
  31. DILTIAZEM HYDROCHLORIDE [Suspect]
     Active Substance: DILTIAZEM HYDROCHLORIDE
     Route: 065
  32. DILTIAZEM HYDROCHLORIDE [Suspect]
     Active Substance: DILTIAZEM HYDROCHLORIDE
     Dosage: 360 MILLIGRAM DAILY;
     Route: 065
  33. DILTIAZEM HYDROCHLORIDE [Suspect]
     Active Substance: DILTIAZEM HYDROCHLORIDE
     Dosage: 360 MILLIGRAM DAILY;
     Route: 065
  34. DILTIAZEM HYDROCHLORIDE [Suspect]
     Active Substance: DILTIAZEM HYDROCHLORIDE
     Dosage: 360 MILLIGRAM DAILY;
     Route: 065
  35. DILTIAZEM HYDROCHLORIDE [Suspect]
     Active Substance: DILTIAZEM HYDROCHLORIDE
     Dosage: 360 MILLIGRAM DAILY;
     Route: 065
  36. DILTIAZEM HYDROCHLORIDE [Suspect]
     Active Substance: DILTIAZEM HYDROCHLORIDE
     Route: 065
  37. DILTIAZEM HYDROCHLORIDE [Suspect]
     Active Substance: DILTIAZEM HYDROCHLORIDE
     Route: 065
  38. DILTIAZEM HYDROCHLORIDE [Suspect]
     Active Substance: DILTIAZEM HYDROCHLORIDE
     Dosage: 360 MILLIGRAM DAILY;
     Route: 065
  39. DILTIAZEM HYDROCHLORIDE [Suspect]
     Active Substance: DILTIAZEM HYDROCHLORIDE
     Route: 065
  40. DILTIAZEM HYDROCHLORIDE [Suspect]
     Active Substance: DILTIAZEM HYDROCHLORIDE
     Route: 065
  41. DILTIAZEM HYDROCHLORIDE [Suspect]
     Active Substance: DILTIAZEM HYDROCHLORIDE
     Dosage: 360 MILLIGRAM DAILY;
     Route: 065
  42. DILTIAZEM HYDROCHLORIDE [Suspect]
     Active Substance: DILTIAZEM HYDROCHLORIDE
     Dosage: 360 MILLIGRAM DAILY;
     Route: 065
  43. DILTIAZEM HYDROCHLORIDE [Suspect]
     Active Substance: DILTIAZEM HYDROCHLORIDE
     Route: 065
  44. DILTIAZEM HYDROCHLORIDE [Suspect]
     Active Substance: DILTIAZEM HYDROCHLORIDE
     Route: 065
  45. DILTIAZEM HYDROCHLORIDE [Suspect]
     Active Substance: DILTIAZEM HYDROCHLORIDE
     Route: 065
  46. FUROSEMIDE [Suspect]
     Active Substance: FUROSEMIDE
     Indication: Product used for unknown indication
     Dosage: 40 MILLIGRAM DAILY;
     Route: 065
  47. FUROSEMIDE [Suspect]
     Active Substance: FUROSEMIDE
     Indication: Oedema
     Dosage: 40 MILLIGRAM DAILY;
     Route: 065
  48. FUROSEMIDE [Suspect]
     Active Substance: FUROSEMIDE
     Indication: Coronary artery disease
  49. FUROSEMIDE [Suspect]
     Active Substance: FUROSEMIDE
     Indication: Chest pain
  50. LACTULOSE [Suspect]
     Active Substance: LACTULOSE
     Indication: Product used for unknown indication
     Dosage: 15 MILLIGRAM DAILY;
     Route: 065
  51. LEVOFLOXACIN [Suspect]
     Active Substance: LEVOFLOXACIN
     Indication: Urinary tract infection
     Route: 065
  52. LEVOFLOXACIN [Suspect]
     Active Substance: LEVOFLOXACIN
     Indication: Product used for unknown indication
  53. MAGNESIUM HYDROXIDE [Suspect]
     Active Substance: MAGNESIUM HYDROXIDE
     Indication: Product used for unknown indication
     Route: 065
  54. MAGNESIUM HYDROXIDE [Suspect]
     Active Substance: MAGNESIUM HYDROXIDE
     Dosage: 1244 MILLIGRAM DAILY;
     Route: 065
  55. MAGNESIUM HYDROXIDE [Suspect]
     Active Substance: MAGNESIUM HYDROXIDE
     Dosage: 622 MILLIGRAM DAILY;
     Route: 065
  56. MORPHINE SULFATE [Suspect]
     Active Substance: MORPHINE SULFATE
     Indication: Pain
     Route: 065
  57. MORPHINE SULFATE [Suspect]
     Active Substance: MORPHINE SULFATE
     Indication: Fibromyalgia
     Route: 065
  58. OMEPRAZOLE [Suspect]
     Active Substance: OMEPRAZOLE
     Indication: Small intestine carcinoma
     Dosage: 20 MILLIGRAM DAILY;
     Route: 048
  59. OMEPRAZOLE [Suspect]
     Active Substance: OMEPRAZOLE
     Indication: Duodenal ulcer
  60. ROSUVASTATIN CALCIUM [Suspect]
     Active Substance: ROSUVASTATIN CALCIUM
     Indication: Chronic obstructive pulmonary disease
     Route: 065
  61. ROSUVASTATIN CALCIUM [Suspect]
     Active Substance: ROSUVASTATIN CALCIUM
     Indication: Chest pain
     Route: 065
  62. ROSUVASTATIN CALCIUM [Suspect]
     Active Substance: ROSUVASTATIN CALCIUM
     Indication: Cerebrovascular accident
     Dosage: 40 MILLIGRAM DAILY;
     Route: 048
  63. ALBUTEROL [Suspect]
     Active Substance: ALBUTEROL
     Indication: Product used for unknown indication
     Dosage: 1600 MILLIGRAM DAILY;
     Route: 065
  64. ALBUTEROL [Suspect]
     Active Substance: ALBUTEROL
     Indication: Chest pain
     Route: 055
  65. ACETAMINOPHEN\CAFFEINE [Suspect]
     Active Substance: ACETAMINOPHEN\CAFFEINE
     Indication: Radioactive iodine therapy
     Dosage: 50 MILLIGRAM DAILY;
     Route: 065
  66. ACETAMINOPHEN\CAFFEINE [Suspect]
     Active Substance: ACETAMINOPHEN\CAFFEINE
     Indication: Hypertension
  67. ACETAMINOPHEN\CAFFEINE [Suspect]
     Active Substance: ACETAMINOPHEN\CAFFEINE
     Indication: Coronary artery disease
  68. ACETAMINOPHEN\CAFFEINE [Suspect]
     Active Substance: ACETAMINOPHEN\CAFFEINE
     Indication: Cerebrovascular accident
  69. ACETAMINOPHEN\CAFFEINE [Suspect]
     Active Substance: ACETAMINOPHEN\CAFFEINE
     Indication: Angina pectoris
  70. ACETAMINOSALOL [Suspect]
     Active Substance: ACETAMINOSALOL
     Indication: Product used for unknown indication
     Route: 065
  71. AGGRENOX [Suspect]
     Active Substance: ASPIRIN\DIPYRIDAMOLE
     Indication: Cerebrovascular accident
     Dosage: 2 DOSAGE FORMS DAILY;
     Route: 065
  72. AMITRIPTYLINE HYDROCHLORIDE [Suspect]
     Active Substance: AMITRIPTYLINE HYDROCHLORIDE
     Indication: Product used for unknown indication
     Route: 065
  73. CARBAMAZEPINE [Suspect]
     Active Substance: CARBAMAZEPINE
     Indication: Product used for unknown indication
     Route: 065
  74. CYCLOBENZAPRINE [Suspect]
     Active Substance: CYCLOBENZAPRINE
     Indication: Product used for unknown indication
     Route: 065
  75. OXAZEPAM [Suspect]
     Active Substance: OXAZEPAM
     Indication: Insomnia
     Dosage: 15 MILLIGRAM DAILY;
     Route: 065
  76. DIPYRIDAMOLE [Suspect]
     Active Substance: DIPYRIDAMOLE
     Indication: Cerebrovascular accident
     Dosage: 4 DOSAGE FORMS DAILY;
     Route: 065
  77. DIPYRIDAMOLE [Suspect]
     Active Substance: DIPYRIDAMOLE
     Dosage: 2 DOSAGE FORMS DAILY;
     Route: 065
  78. DIPYRIDAMOLE [Suspect]
     Active Substance: DIPYRIDAMOLE
     Route: 065
  79. FUROSEMIDE [Suspect]
     Active Substance: FUROSEMIDE
     Indication: Product used for unknown indication
     Dosage: 4 MILLIGRAM DAILY;
     Route: 065
  80. FUROSEMIDE [Suspect]
     Active Substance: FUROSEMIDE
     Indication: Oedema
  81. FUROSEMIDE [Suspect]
     Active Substance: FUROSEMIDE
     Indication: Coronary artery disease
  82. FUROSEMIDE [Suspect]
     Active Substance: FUROSEMIDE
     Indication: Chest pain
  83. GALANTAMINE HYDROBROMIDE [Suspect]
     Active Substance: GALANTAMINE HYDROBROMIDE
     Indication: Product used for unknown indication
     Route: 065
  84. GALANTAMINE HYDROBROMIDE [Suspect]
     Active Substance: GALANTAMINE HYDROBROMIDE
     Route: 065
  85. GALANTAMINE HYDROBROMIDE [Suspect]
     Active Substance: GALANTAMINE HYDROBROMIDE
     Route: 065
  86. GLUCOSAMINE [Suspect]
     Active Substance: GLUCOSAMINE
     Indication: Product used for unknown indication
     Route: 065
  87. GLUCOSAMINE [Suspect]
     Active Substance: GLUCOSAMINE
     Route: 065
  88. GLYCERIN [Suspect]
     Active Substance: GLYCERIN
     Indication: Product used for unknown indication
     Route: 065
  89. NITROGLYCERIN [Suspect]
     Active Substance: NITROGLYCERIN
     Indication: Product used for unknown indication
     Dosage: 1 DOSAGE FORMS DAILY;
     Route: 065
  90. NITROGLYCERIN [Suspect]
     Active Substance: NITROGLYCERIN
     Indication: Coronary artery disease
  91. NITROGLYCERIN [Suspect]
     Active Substance: NITROGLYCERIN
     Indication: Chest pain
  92. LEVOTHYROXINE SODIUM [Suspect]
     Active Substance: LEVOTHYROXINE SODIUM
     Indication: Thyroid disorder
     Route: 065
  93. LEVOTHYROXINE SODIUM [Suspect]
     Active Substance: LEVOTHYROXINE SODIUM
     Indication: Product used for unknown indication
  94. MORPHINE SULFATE [Suspect]
     Active Substance: MORPHINE SULFATE
     Indication: Pain
     Dosage: 10 MILLIGRAM DAILY;
     Route: 065
  95. MORPHINE SULFATE [Suspect]
     Active Substance: MORPHINE SULFATE
     Indication: Fibromyalgia
     Dosage: 10 MILLIGRAM DAILY;
     Route: 065
  96. NITROGLYCERIN [Suspect]
     Active Substance: NITROGLYCERIN
     Indication: Coronary artery disease
     Dosage: 1 DOSAGE FORMS DAILY;
     Route: 065
  97. OXAZEPAM [Suspect]
     Active Substance: OXAZEPAM
     Indication: Product used for unknown indication
     Route: 065
  98. OXAZEPAM [Suspect]
     Active Substance: OXAZEPAM
     Indication: Insomnia
     Dosage: 15 MILLIGRAM DAILY;
     Route: 065
  99. OXAZEPAM [Suspect]
     Active Substance: OXAZEPAM
     Indication: Hypertension
     Route: 065
  100. OXAZEPAM [Suspect]
     Active Substance: OXAZEPAM
     Indication: Angina pectoris
     Route: 065
  101. OXCARBAZEPINE [Suspect]
     Active Substance: OXCARBAZEPINE
     Indication: Product used for unknown indication
     Route: 065
  102. PERSANTINE [Suspect]
     Active Substance: DIPYRIDAMOLE
     Indication: Product used for unknown indication
     Dosage: 2 DOSAGE FORMS DAILY;
     Route: 065
  103. POLYSORBATE 85 [Suspect]
     Active Substance: POLYSORBATE 85
     Indication: Insomnia
     Route: 065
  104. POTASSIUM SORBATE [Suspect]
     Active Substance: POTASSIUM SORBATE
     Indication: Product used for unknown indication
     Route: 065
  105. QUINAPRIL HYDROCHLORIDE [Suspect]
     Active Substance: QUINAPRIL HYDROCHLORIDE
     Indication: Hypertension
     Dosage: 20 MILLIGRAM DAILY;
     Route: 065
  106. QUINAPRIL HYDROCHLORIDE [Suspect]
     Active Substance: QUINAPRIL HYDROCHLORIDE
     Indication: Coronary artery disease
     Dosage: 40 MILLIGRAM DAILY;
     Route: 065
  107. QUINAPRIL HYDROCHLORIDE [Suspect]
     Active Substance: QUINAPRIL HYDROCHLORIDE
     Dosage: 20 MILLIGRAM DAILY;
     Route: 065
  108. QUINAPRIL HYDROCHLORIDE [Suspect]
     Active Substance: QUINAPRIL HYDROCHLORIDE
     Dosage: 40 MILLIGRAM DAILY;
     Route: 065
  109. SODIUM PICOSULFATE [Suspect]
     Active Substance: SODIUM PICOSULFATE
     Indication: Constipation
     Dosage: 2 DOSAGE FORMS DAILY;
     Route: 065
  110. TIOTROPIUM BROMIDE MONOHYDRATE [Suspect]
     Active Substance: TIOTROPIUM BROMIDE MONOHYDRATE
     Indication: Chronic obstructive pulmonary disease
     Route: 065
  111. CRANBERRY [Suspect]
     Active Substance: CRANBERRY
     Indication: Product used for unknown indication
     Route: 065
  112. CRANBERRY [Suspect]
     Active Substance: CRANBERRY
     Route: 065
  113. ASCORBIC ACID\CRANBERRY [Suspect]
     Active Substance: ASCORBIC ACID\CRANBERRY
     Indication: Product used for unknown indication
     Dosage: 500 MILLIGRAM DAILY;
     Route: 065
  114. CRANBERRY [Concomitant]
     Active Substance: CRANBERRY
     Indication: Product used for unknown indication
     Route: 065
  115. CRANBERRY [Concomitant]
     Active Substance: CRANBERRY
     Dosage: 1500 MILLIGRAM DAILY;
     Route: 065
  116. ACETAMINOPHEN [Concomitant]
     Active Substance: ACETAMINOPHEN
     Indication: Product used for unknown indication
     Route: 065
  117. ASPIRIN [Concomitant]
     Active Substance: ASPIRIN
     Indication: Product used for unknown indication
     Route: 065
  118. CRANBERRY [Concomitant]
     Active Substance: CRANBERRY
     Indication: Product used for unknown indication
     Dosage: 1500 MILLIGRAM DAILY;
     Route: 065
  119. CRANBERRY [Concomitant]
     Active Substance: CRANBERRY
     Indication: Bladder disorder
     Route: 065
  120. HERBALS\PLANTAGO OVATA LEAF [Concomitant]
     Active Substance: HERBALS\PLANTAGO OVATA LEAF
     Indication: Constipation
     Route: 065
  121. VITAMIN C [Concomitant]
     Active Substance: ASCORBIC ACID
     Indication: Product used for unknown indication
     Route: 065
  122. ZINC [Concomitant]
     Active Substance: ZINC
     Indication: Product used for unknown indication
     Route: 065
  123. ASPIRIN\CAFFEINE [Suspect]
     Active Substance: ASPIRIN\CAFFEINE

REACTIONS (14)
  - Balance disorder [Recovered/Resolved]
  - Blood calcium decreased [Recovered/Resolved]
  - Cognitive disorder [Recovered/Resolved]
  - Constipation [Recovered/Resolved]
  - Creatinine renal clearance decreased [Recovered/Resolved]
  - Depressed level of consciousness [Recovered/Resolved]
  - Fall [Recovered/Resolved]
  - Hypotension [Recovered/Resolved]
  - Mobility decreased [Recovered/Resolved]
  - Orthostatic hypotension [Recovered/Resolved]
  - Pain [Recovered/Resolved]
  - Sedation [Recovered/Resolved]
  - Sedation complication [Recovered/Resolved]
  - Toxicity to various agents [Recovered/Resolved]
